FAERS Safety Report 21102274 (Version 1)
Quarter: 2022Q3

REPORT INFORMATION
  Report Type: Spontaneous
  Country: IT (occurrence: IT)
  Receive Date: 20220719
  Receipt Date: 20220719
  Transmission Date: 20221027
  Serious: Yes (Life-Threatening)
  Sender: FDA-Public Use
  Company Number: None

PATIENT
  Age: 83 Year
  Sex: Male
  Weight: 54 kg

DRUGS (1)
  1. AMOXICILLIN\CLAVULANATE POTASSIUM [Suspect]
     Active Substance: AMOXICILLIN\CLAVULANATE POTASSIUM
     Indication: Prophylaxis
     Dosage: 1.2 G (PER LA PROFILASSI OPERATORIA , ALLA SOMMINISTRAZIONE DEI PRIMI ML. PER VIA EV, COMPARSA SINTO
     Route: 042
     Dates: start: 20220628, end: 20220628

REACTIONS (4)
  - Vasodilatation [Recovering/Resolving]
  - Hypotension [Recovered/Resolved]
  - Loss of consciousness [Recovering/Resolving]
  - Oxygen saturation decreased [Recovered/Resolved]

NARRATIVE: CASE EVENT DATE: 20220628
